FAERS Safety Report 5902277-X (Version None)
Quarter: 2008Q3

REPORT INFORMATION
  Report Type: 
  Country: None (occurrence: None)
  Receive Date: 20080929
  Receipt Date: 20080603
  Transmission Date: 20090109
  Serious: No
  Sender: FDA-Public Use
  Company Number: US-BAUSCH-2008BL002516

PATIENT
  Age: 60 Year
  Sex: Female

DRUGS (4)
  1. ALAWAY [Suspect]
     Indication: HYPERSENSITIVITY
     Route: 047
     Dates: start: 20080527, end: 20080527
  2. ALAWAY [Suspect]
     Route: 047
     Dates: start: 20080602, end: 20080602
  3. FLONASE [Concomitant]
     Indication: HYPERSENSITIVITY
     Route: 045
  4. MULTI-VITAMINS [Concomitant]
     Route: 048

REACTIONS (2)
  - DRUG INEFFECTIVE [None]
  - EYE PAIN [None]
